FAERS Safety Report 17864319 (Version 2)
Quarter: 2020Q2

REPORT INFORMATION
  Report Type: Report from Study
  Country: JP (occurrence: JP)
  Receive Date: 20200605
  Receipt Date: 20200616
  Transmission Date: 20200714
  Serious: Yes (Other)
  Sender: FDA-Public Use
  Company Number: JP-ASTELLAS-2020JP007409

PATIENT
  Age: 53 Year
  Sex: Male
  Weight: 50 kg

DRUGS (4)
  1. VANFLYTA [Suspect]
     Active Substance: QUIZARTINIB
     Indication: ACUTE MYELOID LEUKAEMIA
     Dosage: 26.5 MG/DAY, UNKNOWN FREQ.
     Route: 048
     Dates: start: 20191018, end: 20191110
  2. VANFLYTA [Suspect]
     Active Substance: QUIZARTINIB
     Dosage: 53 MG/DAY, UNKNOWN FREQ.
     Route: 048
     Dates: start: 20191111, end: 20200117
  3. ASP2215 [Suspect]
     Active Substance: GILTERITINIB
     Indication: ACUTE MYELOID LEUKAEMIA RECURRENT
     Route: 048
     Dates: start: 20190820, end: 20191017
  4. ASP2215 [Suspect]
     Active Substance: GILTERITINIB
     Route: 048
     Dates: start: 20200118

REACTIONS (4)
  - Anaemia [Not Recovered/Not Resolved]
  - Infection [Unknown]
  - White blood cell count decreased [Recovered/Resolved]
  - Platelet count decreased [Not Recovered/Not Resolved]

NARRATIVE: CASE EVENT DATE: 20190820
